FAERS Safety Report 8049527-4 (Version None)
Quarter: 2012Q1

REPORT INFORMATION
  Report Type: 
  Country: None (occurrence: None)
  Receive Date: 20120117
  Receipt Date: 20120111
  Transmission Date: 20120608
  Serious: Yes (Other)
  Sender: FDA-Public Use
  Company Number: JP-ROCHE-1029889

PATIENT
  Age: 82 Year
  Sex: Male

DRUGS (2)
  1. XELODA [Suspect]
     Indication: PRODUCT USED FOR UNKNOWN INDICATION
     Dosage: DOSAGE IS UNCERTAIN.
     Route: 048
  2. OXALIPLATIN [Concomitant]
     Dosage: DOSAGE IS UNCERTAIN.
     Route: 041

REACTIONS (2)
  - ROAD TRAFFIC ACCIDENT [None]
  - PALMAR-PLANTAR ERYTHRODYSAESTHESIA SYNDROME [None]
